FAERS Safety Report 15814289 (Version 5)
Quarter: 2019Q2

REPORT INFORMATION
  Report Type: Report from Study
  Country: US (occurrence: US)
  Receive Date: 20190111
  Receipt Date: 20190415
  Transmission Date: 20190711
  Serious: Yes (Hospitalization, Other)
  Sender: FDA-Public Use
  Company Number: US-TAKEDA-2018TUS023815

PATIENT
  Age: 49 Year
  Sex: Female

DRUGS (1)
  1. PONATINIB [Suspect]
     Active Substance: PONATINIB
     Indication: CHRONIC MYELOID LEUKAEMIA
     Dosage: 30 MILLIGRAM, QD
     Route: 048
     Dates: start: 201805

REACTIONS (13)
  - Haemorrhoids [Unknown]
  - Viral infection [Unknown]
  - Decreased immune responsiveness [Unknown]
  - Alopecia [Unknown]
  - Constipation [Recovering/Resolving]
  - Pyrexia [Unknown]
  - Pain [Unknown]
  - Rash [Unknown]
  - Anal fissure [Unknown]
  - Abdominal pain upper [Unknown]
  - Malaise [Unknown]
  - Contusion [Unknown]
  - Unevaluable event [Unknown]

NARRATIVE: CASE EVENT DATE: 201806
